FAERS Safety Report 5122956-4 (Version None)
Quarter: 2006Q4

REPORT INFORMATION
  Report Type: 
  Country: None (occurrence: None)
  Receive Date: 20061009
  Receipt Date: 20060913
  Transmission Date: 20070319
  Serious: Yes (Hospitalization)
  Sender: FDA-Public Use
  Company Number: JP-ROCHE-463616

PATIENT
  Age: 82 Year
  Sex: Female
  Weight: 39 kg

DRUGS (18)
  1. MADOPAR [Suspect]
     Indication: PARKINSON'S DISEASE
     Route: 048
     Dates: start: 20060303, end: 20060705
  2. MADOPAR [Suspect]
     Route: 048
     Dates: start: 20060706, end: 20060706
  3. MADOPAR [Suspect]
     Route: 048
     Dates: start: 20060707, end: 20060707
  4. MADOPAR [Suspect]
     Route: 048
     Dates: start: 20060708, end: 20060708
  5. CALCIUM ASPARTATE [Concomitant]
     Dosage: TRADE NAME REPORTED AS 'ASTOS-CA'
     Route: 048
     Dates: start: 20060215, end: 20060706
  6. CIBENOL [Concomitant]
  7. ASPIRIN [Concomitant]
     Route: 048
  8. WARFARIN SODIUM [Concomitant]
     Route: 048
  9. FRANDOL [Concomitant]
     Dosage: DOSE FORM REPORTED AS TAPE
     Route: 061
  10. LASIX [Concomitant]
  11. RENIVACE [Concomitant]
     Route: 048
  12. LANSOPRAZOLE [Concomitant]
     Route: 048
  13. GASMOTIN [Concomitant]
     Route: 048
  14. LOXONIN [Concomitant]
     Route: 048
  15. DOGMATYL [Concomitant]
     Route: 048
  16. ALLOPURINOL [Concomitant]
     Route: 048
  17. ROCALTROL [Concomitant]
     Route: 048
     Dates: start: 20060215, end: 20060706
  18. CALCIUM ASPARTATE [Concomitant]
     Dosage: REPORTED AS ASTOS-CA(CALCIUM L-ASPARTATE)
     Route: 048
     Dates: start: 20060215, end: 20060706

REACTIONS (6)
  - ALANINE AMINOTRANSFERASE INCREASED [None]
  - ANOREXIA [None]
  - ASPARTATE AMINOTRANSFERASE INCREASED [None]
  - BLOOD LACTATE DEHYDROGENASE INCREASED [None]
  - LEUKOPENIA [None]
  - LIVER DISORDER [None]
